FAERS Safety Report 8635297 (Version 5)
Quarter: 2013Q1

REPORT INFORMATION
  Report Type: Spontaneous
  Country: GB (occurrence: None)
  Receive Date: 20120613
  Receipt Date: 20121221
  Transmission Date: 20140127
  Serious: Yes (Other)
  Sender: FDA-Public Use
  Company Number: AUR-APL-2012-02484

PATIENT
  Age: 68 Year
  Sex: Female

DRUGS (6)
  1. RISPERIDONE (RISPERIDONE) [Suspect]
     Indication: PSYCHOTIC DISORDER
     Dosage: 0.5 MG, (0.5 MG, 1 IN 1 D),ORAL; 1.5 MG, DAILY AT NIGHT, ORAL
     Route: 048
     Dates: start: 20120403, end: 20120411
  2. MEMANTINE HYDROCHLORIDE [Suspect]
     Indication: DEMENTIA ALZHEIMER^S TYPE
     Dosage: 10 MG, (10 MG, 1 IN 1 D), ORAL
     Route: 048
     Dates: start: 20120106, end: 20120418
  3. ALENDRONIC ACID (ALENDRONIC ACID) [Concomitant]
  4. ASPIRIN (ACETYLSALICYLIC ACID) [Concomitant]
  5. CALCICHEW D3 (LEKOVIT CA) [Concomitant]
  6. SIMVASTATIN [Concomitant]

REACTIONS (4)
  - Orthostatic hypotension [None]
  - Disorientation [None]
  - Sinus bradycardia [None]
  - Psychotic disorder [None]
